FAERS Safety Report 4583749-X (Version None)
Quarter: 2005Q1

REPORT INFORMATION
  Report Type: 
  Country: None (occurrence: None)
  Receive Date: 20050211
  Receipt Date: 20050202
  Transmission Date: 20050727
  Serious: Yes (Hospitalization)
  Sender: FDA-Public Use
  Company Number: 200421018BWH

PATIENT
  Age: 43 Year
  Sex: Male

DRUGS (11)
  1. LEVITRA [Suspect]
     Dosage: 10 MG, PRN, ORAL
     Route: 048
     Dates: start: 20041109
  2. LEVITRA [Suspect]
     Dosage: 10 MG, PRN, ORAL
     Route: 048
     Dates: start: 20041112
  3. COREG [Concomitant]
  4. LASIX [Concomitant]
  5. POTASSIUM SUPPLEMENT [Concomitant]
  6. ALDOSTERONE [Concomitant]
  7. MILRINONE [Concomitant]
  8. RESTORIL [Concomitant]
  9. COZAAR [Concomitant]
  10. FOSAMAX [Concomitant]
  11. FERROUS SEQUELS [Concomitant]

REACTIONS (18)
  - CARDIAC FAILURE [None]
  - CARDIAC FAILURE CONGESTIVE [None]
  - COAGULOPATHY [None]
  - CONDITION AGGRAVATED [None]
  - DIFFICULTY IN WALKING [None]
  - DIZZINESS [None]
  - DYSPNOEA PAROXYSMAL NOCTURNAL [None]
  - GOUT [None]
  - HYPOTENSION [None]
  - HYPOTHYROIDISM [None]
  - LIVER FUNCTION TEST ABNORMAL [None]
  - NAUSEA [None]
  - NORMOCHROMIC NORMOCYTIC ANAEMIA [None]
  - RENAL FAILURE ACUTE [None]
  - VENTRICULAR EXTRASYSTOLES [None]
  - VENTRICULAR TACHYCARDIA [None]
  - VOMITING [None]
  - WEIGHT INCREASED [None]
